FAERS Safety Report 16145739 (Version 4)
Quarter: 2019Q4

REPORT INFORMATION
  Report Type: Report from Study
  Country: None (occurrence: GB)
  Receive Date: 20190402
  Receipt Date: 20191016
  Transmission Date: 20200122
  Serious: Yes (Hospitalization, Other)
  Sender: FDA-Public Use
  Company Number: GB-ABBVIE-19S-167-2728586-00

PATIENT
  Sex: Female

DRUGS (1)
  1. DUODOPA [Suspect]
     Active Substance: CARBIDOPA\LEVODOPA
     Indication: PARKINSON^S DISEASE
     Dosage: 5MG/1ML 20MG/1ML 100ML CASSETTE DAILY
     Route: 050

REACTIONS (5)
  - Medical device site abscess [Unknown]
  - Gastrointestinal perforation [Unknown]
  - Stoma site infection [Recovered/Resolved]
  - Stoma site discharge [Unknown]
  - Device issue [Unknown]
